FAERS Safety Report 25219877 (Version 2)
Quarter: 2025Q2

REPORT INFORMATION
  Report Type: Spontaneous
  Country: KR (occurrence: KR)
  Receive Date: 20250421
  Receipt Date: 20250508
  Transmission Date: 20250716
  Serious: No
  Sender: PFIZER
  Company Number: KR-PFIZER INC-PV202500046335

PATIENT
  Age: 10 Year

DRUGS (1)
  1. GENOTROPIN [Suspect]
     Active Substance: SOMATROPIN

REACTIONS (3)
  - Poor quality device used [Unknown]
  - Device use error [Unknown]
  - Device material issue [Unknown]
